FAERS Safety Report 23257155 (Version 2)
Quarter: 2023Q4

REPORT INFORMATION
  Report Type: Report from Study
  Country: US (occurrence: US)
  Receive Date: 20231204
  Receipt Date: 20231212
  Transmission Date: 20240109
  Serious: Yes (Hospitalization, Other)
  Sender: FDA-Public Use
  Company Number: US-ABBVIE-5523856

PATIENT
  Sex: Male

DRUGS (20)
  1. CREON [Suspect]
     Active Substance: PANCRELIPASE AMYLASE\PANCRELIPASE LIPASE\PANCRELIPASE PROTEASE
     Indication: Pancreatitis chronic
     Dosage: LAST ADMIN DATE: 2023
     Route: 048
     Dates: start: 20231026
  2. SODIUM CHLORIDE [Concomitant]
     Active Substance: SODIUM CHLORIDE
     Indication: Acute kidney injury
     Dosage: 0.9%
     Route: 042
     Dates: start: 20231120, end: 20231121
  3. SODIUM ZIRCONIUM CYCLOSILICATE [Concomitant]
     Active Substance: SODIUM ZIRCONIUM CYCLOSILICATE
     Indication: Hyperkalaemia
     Route: 048
     Dates: start: 20231120, end: 20231120
  4. THIAMINE MONONITRATE [Concomitant]
     Active Substance: THIAMINE MONONITRATE
     Indication: Vitamin supplementation
     Route: 048
     Dates: start: 20231120, end: 20231121
  5. ACETAMINOPHEN [Concomitant]
     Active Substance: ACETAMINOPHEN
     Indication: Pain
     Route: 048
     Dates: start: 20231120, end: 20231120
  6. IOHEXOL [Concomitant]
     Active Substance: IOHEXOL
     Indication: Magnetic resonance imaging
     Dosage: DOSAGE: 300 MG/ML
     Route: 042
     Dates: start: 20231119, end: 20231119
  7. ALBUMIN HUMAN [Concomitant]
     Active Substance: ALBUMIN HUMAN
     Indication: Hepatorenal syndrome
     Route: 042
     Dates: start: 20231120, end: 20231121
  8. CYANOCOBALAMIN [Concomitant]
     Active Substance: CYANOCOBALAMIN
     Indication: Vitamin supplementation
     Route: 048
     Dates: start: 20231120
  9. GABAPENTIN [Concomitant]
     Active Substance: GABAPENTIN
     Indication: Neuropathy peripheral
     Route: 048
     Dates: start: 20231120
  10. HYDROXYZINE [Concomitant]
     Active Substance: HYDROXYZINE HYDROCHLORIDE
     Indication: Anxiety
     Route: 048
     Dates: start: 20231120
  11. INSULIN GLARGINE [Concomitant]
     Active Substance: INSULIN GLARGINE
     Indication: Diabetes mellitus
     Dosage: 20 UNITS
     Route: 058
     Dates: start: 20231120
  12. INSULIN LISPRO [Concomitant]
     Active Substance: INSULIN LISPRO
     Indication: Diabetes mellitus
     Dosage: 0-12 UNITS
     Route: 058
     Dates: start: 20231120
  13. LACTATED RINGERS SOLUTION [Concomitant]
     Active Substance: CALCIUM CHLORIDE\POTASSIUM CHLORIDE\SODIUM CHLORIDE\SODIUM LACTATE
     Indication: Acute kidney injury
     Route: 042
     Dates: start: 20231119, end: 20231120
  14. LACTULOSE [Concomitant]
     Active Substance: LACTULOSE
     Indication: Liver disorder
     Route: 048
     Dates: start: 20231120, end: 20231121
  15. METOCLOPRAMIDE [Concomitant]
     Active Substance: METOCLOPRAMIDE
     Indication: Nausea
     Route: 042
     Dates: start: 20231120, end: 20231120
  16. MIDODRINE [Concomitant]
     Active Substance: MIDODRINE
     Indication: Hypertension
     Route: 048
     Dates: start: 20231120
  17. ONDANSETRON [Concomitant]
     Active Substance: ONDANSETRON
     Indication: Nausea
     Route: 042
     Dates: start: 20231119
  18. PANTOPRAZOLE [Concomitant]
     Active Substance: PANTOPRAZOLE
     Indication: Gastrooesophageal reflux disease
     Route: 042
     Dates: start: 20231120
  19. PYRIDOXINE [Concomitant]
     Active Substance: PYRIDOXINE
     Indication: Vitamin supplementation
     Route: 048
     Dates: start: 20231120
  20. RIFAXIMIN [Concomitant]
     Active Substance: RIFAXIMIN
     Indication: Hepatic encephalopathy prophylaxis
     Route: 048
     Dates: start: 20231120

REACTIONS (2)
  - Dehydration [Unknown]
  - Acute kidney injury [Recovered/Resolved]

NARRATIVE: CASE EVENT DATE: 20230101
